FAERS Safety Report 14909192 (Version 2)
Quarter: 2018Q2

REPORT INFORMATION
  Report Type: Spontaneous
  Country: US (occurrence: US)
  Receive Date: 20180517
  Receipt Date: 20180525
  Transmission Date: 20180711
  Serious: Yes (Hospitalization)
  Sender: FDA-Public Use
  Company Number: US-JNJFOC-20180521829

PATIENT
  Age: 42 Year
  Sex: Male
  Weight: 77.57 kg

DRUGS (5)
  1. RISPERDAL CONSTA [Suspect]
     Active Substance: RISPERIDONE
     Indication: PARANOIA
     Route: 030
     Dates: start: 2014
  2. PROTONIX [Concomitant]
     Active Substance: PANTOPRAZOLE SODIUM
     Indication: GASTROOESOPHAGEAL REFLUX DISEASE
     Route: 048
     Dates: start: 201504
  3. RISPERDAL CONSTA [Suspect]
     Active Substance: RISPERIDONE
     Indication: ANGER
     Route: 030
     Dates: start: 2014
  4. INVEGA SUSTENNA [Suspect]
     Active Substance: PALIPERIDONE PALMITATE
     Indication: ANGER
     Route: 030
     Dates: start: 2013, end: 2014
  5. INVEGA SUSTENNA [Suspect]
     Active Substance: PALIPERIDONE PALMITATE
     Indication: PARANOIA
     Route: 030
     Dates: start: 2013, end: 2014

REACTIONS (5)
  - Anger [Recovered/Resolved]
  - Drug ineffective [Unknown]
  - Drug dose omission [Unknown]
  - Product storage error [Unknown]
  - Gastric perforation [Unknown]

NARRATIVE: CASE EVENT DATE: 2013
